FAERS Safety Report 22243266 (Version 1)
Quarter: 2023Q2

REPORT INFORMATION
  Report Type: Spontaneous
  Country: US (occurrence: None)
  Receive Date: 20230421
  Receipt Date: 20230421
  Transmission Date: 20230722
  Serious: Yes (Death)
  Sender: FDA-Public Use
  Company Number: None

PATIENT
  Age: 53 Year
  Sex: Male

DRUGS (1)
  1. DONEPEZIL [Suspect]
     Active Substance: DONEPEZIL
     Dosage: FREQUENCY : DAILY;?
     Route: 048
     Dates: start: 20200514

REACTIONS (1)
  - Overdose [None]

NARRATIVE: CASE EVENT DATE: 20230216
